FAERS Safety Report 8189167-X (Version None)
Quarter: 2012Q1

REPORT INFORMATION
  Report Type: 
  Country: None (occurrence: None)
  Receive Date: 20120306
  Receipt Date: 20120306
  Transmission Date: 20120608
  Serious: Yes (Other)
  Sender: FDA-Public Use
  Company Number: None

PATIENT
  Sex: Female
  Weight: 70.3075 kg

DRUGS (1)
  1. PROLIA [Suspect]
     Dosage: 1 INJECTION
     Dates: start: 20110927

REACTIONS (3)
  - MUSCULOSKELETAL PAIN [None]
  - BACK PAIN [None]
  - PAIN IN EXTREMITY [None]
